FAERS Safety Report 9613284 (Version 3)
Quarter: 2014Q1

REPORT INFORMATION
  Report Type: Report from Study
  Country: BG (occurrence: BG)
  Receive Date: 20131010
  Receipt Date: 20140220
  Transmission Date: 20141002
  Serious: Yes (Hospitalization)
  Sender: FDA-Public Use
  Company Number: BG-ASTRAZENECA-2013SE74333

PATIENT
  Age: 23480 Day
  Sex: Male

DRUGS (8)
  1. AZD6140 [Suspect]
     Indication: CORONARY ARTERY DISEASE
     Route: 048
     Dates: start: 20120628, end: 20130113
  2. ASPIRIN [Suspect]
     Route: 048
     Dates: end: 20120710
  3. ASPIRIN [Suspect]
     Route: 048
     Dates: start: 20120724
  4. BETALOC ZOK [Concomitant]
     Indication: ESSENTIAL HYPERTENSION
     Route: 048
  5. GOPTEN [Concomitant]
     Indication: MYOCARDIAL ISCHAEMIA
     Route: 048
  6. METFORMIN [Concomitant]
     Indication: TYPE 2 DIABETES MELLITUS
     Route: 048
  7. ROSUVANOR [Concomitant]
     Indication: DYSLIPIDAEMIA
     Route: 048
  8. TRIMDUCTAL [Concomitant]
     Indication: MYOCARDIAL ISCHAEMIA
     Route: 048

REACTIONS (1)
  - Duodenal ulcer haemorrhage [Recovered/Resolved]
